FAERS Safety Report 20350794 (Version 1)
Quarter: 2022Q1

REPORT INFORMATION
  Report Type: Other
  Country: US (occurrence: US)
  Receive Date: 20220119
  Receipt Date: 20220119
  Transmission Date: 20220423
  Serious: Yes (Hospitalization, Other)
  Sender: FDA-Public Use
  Company Number: US-INTERCEPT-PM2021003241

PATIENT
  Sex: Female
  Weight: 71.9 kg

DRUGS (14)
  1. OCALIVA [Suspect]
     Active Substance: OBETICHOLIC ACID
     Indication: Primary biliary cholangitis
     Dosage: 5 MILLIGRAM, QD
     Route: 048
     Dates: start: 20200330, end: 202109
  2. URSO [Concomitant]
     Active Substance: URSODIOL
     Indication: Primary biliary cholangitis
     Dosage: 500 MILLIGRAM, BID
     Dates: start: 2019
  3. URSO [Concomitant]
     Active Substance: URSODIOL
     Dosage: 500 MILLIGRAM, QD
  4. URSO [Concomitant]
     Active Substance: URSODIOL
     Dosage: 300 MILLIGRAM, TID
     Dates: start: 202109
  5. PREDNISONE [Concomitant]
     Active Substance: PREDNISONE
     Indication: Pulmonary fibrosis
     Dosage: 30 MILLIGRAM, QD
     Route: 048
     Dates: start: 202106
  6. PREDNISONE [Concomitant]
     Active Substance: PREDNISONE
     Dosage: 40 MILLIGRAM, QD
     Route: 048
  7. PREDNISONE [Concomitant]
     Active Substance: PREDNISONE
     Dosage: 20 MILLIGRAM, QD
     Route: 048
  8. PREDNISONE [Concomitant]
     Active Substance: PREDNISONE
     Dosage: 10 MILLIGRAM, QD
     Route: 048
  9. ASTELIN [Concomitant]
     Active Substance: AZELASTINE HYDROCHLORIDE
     Route: 045
  10. VITAMIN D3 [Concomitant]
     Active Substance: CHOLECALCIFEROL
  11. VITAMIN B12 [Concomitant]
     Active Substance: CYANOCOBALAMIN
     Dosage: INJECT 1  ML (1,000 MCG) INTO THE MUSCLE EVERY 30 (THIRTY) DAY
  12. SYNTHROID [Concomitant]
     Active Substance: LEVOTHYROXINE SODIUM
     Indication: Hypothyroidism
     Dosage: 88 MICROGRAM, QD
     Route: 048
  13. PRAVACHOL [Concomitant]
     Active Substance: PRAVASTATIN SODIUM
     Dosage: 10 MILLIGRAM, QHS
     Route: 048
  14. METAMUCIL [Concomitant]
     Active Substance: PLANTAGO SEED

REACTIONS (9)
  - Cardiac failure congestive [Unknown]
  - Acute respiratory failure [Unknown]
  - Interstitial lung disease [Unknown]
  - Pneumonia [Unknown]
  - Pollakiuria [Recovering/Resolving]
  - Chills [Unknown]
  - Dyslipidaemia [Unknown]
  - Muscle spasms [Unknown]
  - Insomnia [Unknown]

NARRATIVE: CASE EVENT DATE: 20210101
